FAERS Safety Report 7821971-7 (Version None)
Quarter: 2011Q4

REPORT INFORMATION
  Report Type: 
  Country: None (occurrence: None)
  Receive Date: 20111018
  Receipt Date: 20100908
  Transmission Date: 20120403
  Serious: No
  Sender: FDA-Public Use
  Company Number: US-ASTRAZENECA-2010SE42131

PATIENT
  Age: 54 Year
  Sex: Male
  Weight: 60.8 kg

DRUGS (16)
  1. HYDROXYZINE [Concomitant]
  2. FOLIC ACID [Concomitant]
  3. SIMVASTATIN [Concomitant]
  4. THIAMINE HCL [Concomitant]
     Dosage: DAILY
  5. CHOLESTYRAMINE [Concomitant]
     Dosage: 1 PACKET DAILY
  6. HYDROCODONE BITARTRATE [Concomitant]
  7. CLONAZEPAM [Concomitant]
  8. SYMBICORT [Suspect]
     Indication: CHRONIC OBSTRUCTIVE PULMONARY DISEASE
     Dosage: 160 MCG BID
     Route: 055
     Dates: start: 20100601
  9. NIACIN [Concomitant]
  10. HYDRACERIN [Concomitant]
     Dosage: BID
  11. CARVEDILOL [Concomitant]
  12. MULTI-VITAMIN [Concomitant]
     Dosage: DAILY
  13. COMBIVENT [Concomitant]
     Indication: CHRONIC OBSTRUCTIVE PULMONARY DISEASE
  14. GUAIFENESIN [Concomitant]
     Dosage: PRN
  15. OMEPRAZOLE [Concomitant]
  16. ZYPREXA [Concomitant]

REACTIONS (3)
  - COUGH [None]
  - PULMONARY CONGESTION [None]
  - SINUSITIS [None]
